FAERS Safety Report 19256192 (Version 1)
Quarter: 2021Q2

REPORT INFORMATION
  Report Type: Spontaneous
  Country: US (occurrence: US)
  Receive Date: 20210514
  Receipt Date: 20210514
  Transmission Date: 20210717
  Serious: No
  Sender: FDA-Public Use
  Company Number: US-ELI_LILLY_AND_COMPANY-US202105005873

PATIENT
  Sex: Male

DRUGS (6)
  1. HUMALOG KWIKPEN [Suspect]
     Active Substance: INSULIN LISPRO
     Indication: DIABETES MELLITUS
     Dosage: UNK UNK, PRN WITH MEALS
     Route: 058
     Dates: start: 20201104
  2. HUMALOG KWIKPEN [Suspect]
     Active Substance: INSULIN LISPRO
     Dosage: UNK UNK, PRN WITH MEALS (MINIMUM 10 UNITS PER MEAL AND CAN GO UP TO 60UNITS)
     Route: 058
  3. HUMALOG [Suspect]
     Active Substance: INSULIN LISPRO
     Indication: DIABETES MELLITUS
     Dosage: UNK UNK, PRN WITH MEALS
     Route: 058
     Dates: start: 2016
  4. HUMALOG KWIKPEN [Suspect]
     Active Substance: INSULIN LISPRO
     Indication: DIABETES MELLITUS
     Dosage: UNK UNK, PRN WITH MEALS
     Route: 058
     Dates: start: 20201104
  5. TOUJEO [Suspect]
     Active Substance: INSULIN GLARGINE
     Indication: DIABETES MELLITUS
     Dosage: 55 U, DAILY
     Route: 065
  6. HUMALOG KWIKPEN [Suspect]
     Active Substance: INSULIN LISPRO
     Dosage: UNK UNK, PRN WITH MEALS (MINIMUM 10 UNITS PER MEAL AND CAN GO UP TO 60UNITS)
     Route: 058

REACTIONS (7)
  - Cataract [Recovering/Resolving]
  - Blood glucose decreased [Recovering/Resolving]
  - Diabetic neuropathy [Recovering/Resolving]
  - Diabetes mellitus inadequate control [Recovering/Resolving]
  - Hypoacusis [Recovering/Resolving]
  - Visual impairment [Recovering/Resolving]
  - Colour blindness [Recovering/Resolving]
